FAERS Safety Report 8782993 (Version 1)
Quarter: 2012Q4

REPORT INFORMATION
  Report Type: 
  Country: CA (occurrence: CA)
  Receive Date: 20120913
  Receipt Date: 20120913
  Transmission Date: 20130627
  Serious: Yes (Other)
  Sender: FDA-Public Use
  Company Number: CA-BRISTOL-MYERS SQUIBB COMPANY-16927147

PATIENT
  Age: 70 Year
  Sex: Female

DRUGS (11)
  1. ORENCIA [Suspect]
     Indication: RHEUMATOID ARTHRITIS
     Dosage: Last inf:30Aug2012, No of inf:38
     Route: 042
     Dates: start: 20091120
  2. SULFASALAZINE [Concomitant]
  3. METHOTREXATE [Concomitant]
  4. FOLIC ACID [Concomitant]
  5. SYNTHROID [Concomitant]
  6. PREDNISONE [Concomitant]
  7. FOSAMAX [Concomitant]
  8. VENTOLIN [Concomitant]
  9. FLOVENT [Concomitant]
  10. NASONEX [Concomitant]
  11. CELEBREX [Concomitant]

REACTIONS (1)
  - Amyotrophic lateral sclerosis [Unknown]
